FAERS Safety Report 13709930 (Version 1)
Quarter: 2017Q3

REPORT INFORMATION
  Report Type: Spontaneous
  Country: US (occurrence: US)
  Receive Date: 20170703
  Receipt Date: 20170703
  Transmission Date: 20171127
  Serious: No
  Sender: FDA-Public Use
  Company Number: US-ELI_LILLY_AND_COMPANY-US201706013157

PATIENT
  Sex: Male

DRUGS (1)
  1. HUMALOG KWIKPEN [Suspect]
     Active Substance: INSULIN LISPRO
     Indication: TYPE 2 DIABETES MELLITUS
     Dosage: 8 U, UNKNOWN
     Route: 058
     Dates: start: 201706

REACTIONS (2)
  - Blood glucose increased [Not Recovered/Not Resolved]
  - Incorrect dosage administered [Unknown]
